FAERS Safety Report 7303453-4 (Version None)
Quarter: 2011Q1

REPORT INFORMATION
  Report Type: 
  Country: None (occurrence: None)
  Receive Date: 20110221
  Receipt Date: 20110103
  Transmission Date: 20110831
  Serious: Yes (Other)
  Sender: FDA-Public Use
  Company Number: US-BAYER-201030259NA

PATIENT
  Sex: Female

DRUGS (3)
  1. YAZ [Suspect]
     Indication: PRODUCT USED FOR UNKNOWN INDICATION
     Route: 048
     Dates: start: 20030101
  2. YASMIN [Suspect]
     Indication: PRODUCT USED FOR UNKNOWN INDICATION
     Dosage: UNK
     Route: 048
     Dates: start: 20030101, end: 20040101
  3. ASACOL [Concomitant]
     Indication: PRODUCT USED FOR UNKNOWN INDICATION
     Dosage: UNK
     Dates: end: 20040101

REACTIONS (8)
  - CYST RUPTURE [None]
  - ABDOMINAL PAIN LOWER [None]
  - MENTAL DISORDER [None]
  - APPENDICECTOMY [None]
  - PELVIC HAEMORRHAGE [None]
  - FLANK PAIN [None]
  - GALLBLADDER INJURY [None]
  - ABDOMINAL ADHESIONS [None]
